FAERS Safety Report 9829335 (Version 4)
Quarter: 2016Q1

REPORT INFORMATION
  Report Type: Report from Study
  Country: CA (occurrence: CA)
  Receive Date: 20140120
  Receipt Date: 20160315
  Transmission Date: 20160526
  Serious: Yes (Other)
  Sender: FDA-Public Use
  Company Number: CA-ROCHE-1202836

PATIENT
  Age: 59 Year
  Sex: Female
  Weight: 69.9 kg

DRUGS (13)
  1. ACETAMINOPHEN. [Concomitant]
     Active Substance: ACETAMINOPHEN
     Indication: PREMEDICATION
     Route: 048
     Dates: start: 20120607
  2. MICARDIS PLUS [Concomitant]
     Active Substance: HYDROCHLOROTHIAZIDE\TELMISARTAN
  3. RALOXIFENE. [Concomitant]
     Active Substance: RALOXIFENE
  4. JANUVIA [Concomitant]
     Active Substance: SITAGLIPTIN PHOSPHATE
  5. PREGABALIN. [Concomitant]
     Active Substance: PREGABALIN
  6. METHYLPREDNISOLONE. [Concomitant]
     Active Substance: METHYLPREDNISOLONE
     Indication: PREMEDICATION
     Route: 042
     Dates: start: 20120607
  7. INSULIN [Concomitant]
     Active Substance: INSULIN NOS
  8. RITUXAN [Suspect]
     Active Substance: RITUXIMAB
     Indication: POLYMYOSITIS
     Dosage: DATE OF LAST DOSE PRIOR TO SAE 13/FEB/2014
     Route: 042
     Dates: start: 20120607
  9. DIPHENHYDRAMINE HCL [Concomitant]
     Active Substance: DIPHENHYDRAMINE HYDROCHLORIDE
     Indication: PREMEDICATION
     Route: 048
     Dates: start: 20120607
  10. TRAMCET [Concomitant]
     Active Substance: ACETAMINOPHEN\TRAMADOL
  11. PREDNISONE. [Concomitant]
     Active Substance: PREDNISONE
  12. ASPIRIN. [Concomitant]
     Active Substance: ASPIRIN
     Route: 065
  13. ACTONEL [Concomitant]
     Active Substance: RISEDRONATE SODIUM
     Route: 065

REACTIONS (8)
  - Blood glucose increased [Unknown]
  - Throat irritation [Recovered/Resolved]
  - Polymyositis [Not Recovered/Not Resolved]
  - Myositis [Unknown]
  - Cough [Recovering/Resolving]
  - Throat irritation [Recovered/Resolved]
  - Fibromyalgia [Unknown]
  - Off label use [Unknown]

NARRATIVE: CASE EVENT DATE: 2013
